FAERS Safety Report 11315348 (Version 2)
Quarter: 2015Q3

REPORT INFORMATION
  Report Type: Spontaneous
  Country: JP (occurrence: JP)
  Receive Date: 20150727
  Receipt Date: 20150827
  Transmission Date: 20151125
  Serious: Yes (Life-Threatening)
  Sender: FDA-Public Use
  Company Number: PHJP2015JP012069

PATIENT
  Age: 93 Year
  Sex: Female
  Weight: 35 kg

DRUGS (12)
  1. MEDLENIK [Concomitant]
     Active Substance: CUPRIC SULFATE\FERRIC CHLORIDE\MANGANESE CHLORIDE\POTASSIUM IODIDE\ZINC SULFATE
     Indication: NUTRITIONAL SUPPLEMENTATION
     Dosage: 2 ML, UNK
     Route: 065
  2. SOLULACT [Concomitant]
     Indication: NUTRITIONAL SUPPLEMENTATION
     Dosage: 500 ML, QD
     Route: 065
  3. FUROSEMIDE. [Concomitant]
     Active Substance: FUROSEMIDE
     Indication: NUTRITIONAL SUPPLEMENTATION
     Dosage: 20 MG, QD
     Route: 041
  4. URSO [Concomitant]
     Active Substance: URSODIOL
     Indication: CHOLELITHIASIS
     Dosage: 200 MG, TID
     Route: 048
  5. VASOLAN [Concomitant]
     Active Substance: VERAPAMIL HYDROCHLORIDE
     Indication: TACHYCARDIA
     Dosage: 40 MG, BID
     Route: 048
     Dates: start: 20150205
  6. AMIKAMYCIN [Concomitant]
     Dosage: 200 MG, BID
     Route: 041
     Dates: start: 20150708, end: 20150708
  7. VOLTAREN SUP [Suspect]
     Active Substance: DICLOFENAC SODIUM
     Dosage: UNK UNK, PRN
     Route: 054
     Dates: start: 20150709, end: 20150709
  8. SULPERAZON [Concomitant]
     Active Substance: CEFOPERAZONE SODIUM\SULBACTAM SODIUM
     Indication: PRODUCT USED FOR UNKNOWN INDICATION
     Dosage: 1 G, UNK
     Route: 065
     Dates: start: 20150709
  9. FUROSEMIDE. [Concomitant]
     Active Substance: FUROSEMIDE
     Dosage: UNK
     Route: 041
  10. VOLTAREN SUP [Suspect]
     Active Substance: DICLOFENAC SODIUM
     Indication: PYREXIA
     Dosage: 12.5 MG, ONCE/SINGLE
     Route: 054
     Dates: start: 20150709, end: 20150709
  11. FULCALIQ [Concomitant]
     Active Substance: AMINO ACIDS\CARBOHYDRATES\ELECTROLYTES NOS\VITAMINS
     Indication: NUTRITIONAL SUPPLEMENTATION
     Dosage: 1003 ML, QD
     Route: 065
  12. AMIKAMYCIN [Concomitant]
     Indication: PRODUCT USED FOR UNKNOWN INDICATION
     Dosage: 300 MG, QD
     Route: 041
     Dates: start: 20150707, end: 20150707

REACTIONS (4)
  - Anuria [Recovered/Resolved]
  - Blood pressure decreased [Recovered/Resolved]
  - Blood urea increased [Unknown]
  - C-reactive protein increased [Unknown]

NARRATIVE: CASE EVENT DATE: 20150709
